FAERS Safety Report 6041900-9 (Version None)
Quarter: 2009Q1

REPORT INFORMATION
  Report Type: 
  Country: None (occurrence: None)
  Receive Date: 20090116
  Receipt Date: 20090112
  Transmission Date: 20090719
  Serious: Yes (Hospitalization)
  Sender: FDA-Public Use
  Company Number: US-BRISTOL-MYERS SQUIBB COMPANY-14449243

PATIENT
  Age: 68 Year
  Sex: Male
  Weight: 99 kg

DRUGS (3)
  1. CARBOPLATIN [Suspect]
     Indication: LUNG NEOPLASM MALIGNANT
     Dosage: TAKEN ON 10NOV2008 1 DOSAGE FORM=6AUC
     Dates: start: 20081209, end: 20081209
  2. TAXOL [Suspect]
     Indication: LUNG NEOPLASM MALIGNANT
     Dosage: INITIALLY TAKEN ON 10NOV2008
     Dates: start: 20081209, end: 20081209
  3. PREDNISONE [Suspect]
     Route: 048
     Dates: start: 20081111

REACTIONS (1)
  - MENTAL STATUS CHANGES [None]
